FAERS Safety Report 4468836-9 (Version None)
Quarter: 2004Q3

REPORT INFORMATION
  Report Type: 
  Country: None (occurrence: None)
  Receive Date: 20040917
  Receipt Date: 20040819
  Transmission Date: 20050211
  Serious: No
  Sender: FDA-Public Use
  Company Number: US-JNJFOC-20040807277

PATIENT
  Age: 34 Year
  Sex: Female
  Weight: 71.6683 kg

DRUGS (5)
  1. ORTHO EVRA [Suspect]
     Indication: CONTRACEPTION
     Dosage: 1 DOSE(S), 3 IN 4 WEEK, TRANSDERMAL
     Route: 062
     Dates: start: 20040401, end: 20040816
  2. SINGULAIR (MONTELUKAST PROPIONATE) [Concomitant]
  3. FLONASE [Concomitant]
  4. ALEVE [Concomitant]
  5. ZANTAC [Concomitant]

REACTIONS (3)
  - HEADACHE [None]
  - HYPOAESTHESIA [None]
  - PAIN IN EXTREMITY [None]
